FAERS Safety Report 16528683 (Version 2)
Quarter: 2019Q3

REPORT INFORMATION
  Report Type: Report from Study
  Country: AU (occurrence: AU)
  Receive Date: 20190703
  Receipt Date: 20190823
  Transmission Date: 20191004
  Serious: No
  Sender: FDA-Public Use
  Company Number: PHHY2019AU151814

PATIENT
  Age: 37 Year
  Sex: Male

DRUGS (1)
  1. COSENTYX [Suspect]
     Active Substance: SECUKINUMAB
     Indication: PSORIATIC ARTHROPATHY
     Dosage: UNK, QW
     Route: 058
     Dates: start: 20190619

REACTIONS (7)
  - Mental disorder [Recovered/Resolved]
  - Insomnia [Recovered/Resolved]
  - Feeling of body temperature change [Recovered/Resolved]
  - Heart rate increased [Recovered/Resolved]
  - Nightmare [Recovered/Resolved]
  - Viral infection [Unknown]
  - General physical condition abnormal [Recovered/Resolved]

NARRATIVE: CASE EVENT DATE: 20190701
